FAERS Safety Report 13337230 (Version 1)
Quarter: 2017Q1

REPORT INFORMATION
  Report Type: Spontaneous
  Country: US (occurrence: US)
  Receive Date: 20170314
  Receipt Date: 20170314
  Transmission Date: 20170428
  Serious: Yes (Other)
  Sender: FDA-Public Use
  Company Number: None

PATIENT
  Age: 30 Year
  Sex: Female
  Weight: 72.9 kg

DRUGS (4)
  1. LORATADINE. [Suspect]
     Active Substance: LORATADINE
     Indication: MULTIPLE ALLERGIES
     Dosage: ?          QUANTITY:1 TABLET(S);?
     Route: 048
     Dates: start: 20170313, end: 20170314
  2. LORATADINE. [Suspect]
     Active Substance: LORATADINE
     Indication: SINUS DISORDER
     Dosage: ?          QUANTITY:1 TABLET(S);?
     Route: 048
     Dates: start: 20170313, end: 20170314
  3. PRENATAL VITAMINS [Concomitant]
     Active Substance: VITAMINS
  4. SALINE NASAL SPRAY [Concomitant]
     Active Substance: SODIUM CHLORIDE

REACTIONS (4)
  - Somnolence [None]
  - Pain [None]
  - Dizziness [None]
  - Heart rate increased [None]

NARRATIVE: CASE EVENT DATE: 20170314
